FAERS Safety Report 25912635 (Version 1)
Quarter: 2025Q4

REPORT INFORMATION
  Report Type: Spontaneous
  Country: US (occurrence: None)
  Receive Date: 20251013
  Receipt Date: 20251013
  Transmission Date: 20260117
  Serious: Yes (Hospitalization)
  Sender: ENDO
  Company Number: US-ENDO USA, INC.-2025-002112

PATIENT
  Age: 48 Year
  Sex: Female

DRUGS (1)
  1. ADRENALIN [Suspect]
     Active Substance: EPINEPHRINE
     Indication: Food allergy
     Dosage: 0.3 MILLIGRAM, SINGLE

REACTIONS (2)
  - Kounis syndrome [Recovered/Resolved]
  - Acute myocardial infarction [Recovered/Resolved]
